FAERS Safety Report 6190986-X (Version None)
Quarter: 2009Q2

REPORT INFORMATION
  Report Type: 
  Country: None (occurrence: None)
  Receive Date: 20090513
  Receipt Date: 20090430
  Transmission Date: 20091009
  Serious: Yes (Life-Threatening, Hospitalization, Other)
  Sender: FDA-Public Use
  Company Number: ADE# 09-196DPR

PATIENT
  Age: 69 Year
  Sex: Male

DRUGS (10)
  1. DIGOXIN [Suspect]
     Indication: HEART RATE INCREASED
     Dates: end: 20090327
  2. COREG [Concomitant]
  3. LASIX [Concomitant]
  4. PLAVIX [Concomitant]
  5. ACIPHEX [Concomitant]
  6. ASPIRIN [Concomitant]
  7. KLOR-CON [Concomitant]
  8. IPRATROPIUM BROMIDE PRN IN NEBULIZER [Concomitant]
  9. MULTI-VITAMIN [Concomitant]
  10. VITAMIN B COMPLEX CAP [Concomitant]

REACTIONS (6)
  - AMNESIA [None]
  - CARDIAC ARREST [None]
  - DYSPNOEA [None]
  - HEART RATE INCREASED [None]
  - MYOCARDIAL INFARCTION [None]
  - STAPHYLOCOCCAL INFECTION [None]
